FAERS Safety Report 6733556-4 (Version None)
Quarter: 2010Q2

REPORT INFORMATION
  Report Type: 
  Country: None (occurrence: None)
  Receive Date: 20100520
  Receipt Date: 20100512
  Transmission Date: 20101027
  Serious: Yes (Other)
  Sender: FDA-Public Use
  Company Number: FR-ASTRAZENECA-2010SE21657

PATIENT
  Age: 62 Year
  Sex: Male
  Weight: 62 kg

DRUGS (1)
  1. CRESTOR [Suspect]
     Indication: HYPERCHOLESTEROLAEMIA
     Route: 048

REACTIONS (4)
  - ROTATOR CUFF SYNDROME [None]
  - TENDON DISORDER [None]
  - TENDON PAIN [None]
  - TENDON RUPTURE [None]
